FAERS Safety Report 8392340-9 (Version None)
Quarter: 2012Q2

REPORT INFORMATION
  Report Type: 
  Country: None (occurrence: None)
  Receive Date: 20120529
  Receipt Date: 20120514
  Transmission Date: 20120825
  Serious: Yes (Death, Hospitalization, Other)
  Sender: FDA-Public Use
  Company Number: US-ROCHE-425208

PATIENT
  Age: 17 Year
  Sex: Female

DRUGS (1)
  1. ROCEPHIN [Suspect]
     Indication: PNEUMONIA
     Dosage: ADMINISTERED BETWEEN THE TWO HOSPITALS.
     Route: 065

REACTIONS (6)
  - HEPATITIS [None]
  - RENAL FAILURE [None]
  - HEPATIC FAILURE [None]
  - CARDIAC ARREST [None]
  - RESPIRATORY FAILURE [None]
  - HAEMOLYTIC ANAEMIA [None]
